FAERS Safety Report 6278207-0 (Version None)
Quarter: 2009Q3

REPORT INFORMATION
  Report Type: 
  Country: None (occurrence: None)
  Receive Date: 20090722
  Receipt Date: 20061120
  Transmission Date: 20100115
  Serious: Yes (Other)
  Sender: FDA-Public Use
  Company Number: US-PFIZER INC-2006143355

PATIENT
  Sex: Female
  Weight: 53 kg

DRUGS (1)
  1. LYRICA [Suspect]
     Dosage: 50 MG, 2X/DAY

REACTIONS (4)
  - CONVULSION [None]
  - GRAND MAL CONVULSION [None]
  - TONGUE HAEMORRHAGE [None]
  - TONGUE INJURY [None]
